FAERS Safety Report 7126506-2 (Version None)
Quarter: 2010Q4

REPORT INFORMATION
  Report Type: 
  Country: None (occurrence: None)
  Receive Date: 20101129
  Receipt Date: 20101117
  Transmission Date: 20110411
  Serious: Yes (Other)
  Sender: FDA-Public Use
  Company Number: GB-PFIZER INC-2010151625

PATIENT
  Age: 34 Year
  Sex: Female

DRUGS (1)
  1. LYRICA [Suspect]
     Dosage: 375 MG, 2X/DAY

REACTIONS (1)
  - PSYCHOTIC DISORDER [None]
